FAERS Safety Report 4644087-X (Version None)
Quarter: 2005Q2

REPORT INFORMATION
  Report Type: 
  Country: None (occurrence: None)
  Receive Date: 20050331
  Receipt Date: 20041229
  Transmission Date: 20051028
  Serious: No
  Sender: FDA-Public Use
  Company Number: 04P-163-0284939-00

PATIENT
  Age: 70 Year
  Sex: Female
  Weight: 66.2252 kg

DRUGS (4)
  1. HUMIRA [Suspect]
     Indication: RHEUMATOID ARTHRITIS
     Dosage: 40 MG, 1 IN 1 WK, SUBCUTANEOUS
     Route: 058
     Dates: start: 20040101, end: 20041211
  2. FOLIC ACID [Concomitant]
  3. METHOTREXATE [Concomitant]
  4. VERAPAMIL HYDROCHLORIDE [Concomitant]

REACTIONS (1)
  - SINUSITIS [None]
